FAERS Safety Report 22365813 (Version 1)
Quarter: 2023Q2

REPORT INFORMATION
  Report Type: Spontaneous
  Country: US (occurrence: US)
  Receive Date: 20230525
  Receipt Date: 20230525
  Transmission Date: 20230722
  Serious: No
  Sender: FDA-Public Use
  Company Number: US-SA-SAC20230523000361

PATIENT
  Age: 24 Year
  Sex: Female
  Weight: 68.039 kg

DRUGS (7)
  1. DUPIXENT [Suspect]
     Active Substance: DUPILUMAB
     Indication: Rhinitis allergic
     Dosage: 300 MG, QOW
     Route: 058
     Dates: start: 202107
  2. FISH OIL [Concomitant]
     Active Substance: FISH OIL
  3. NORETHINDRONE [Concomitant]
     Active Substance: NORETHINDRONE
  4. XANAX [Concomitant]
     Active Substance: ALPRAZOLAM
  5. PFIZER BIONTECH COVID-19 VACCINE, BIVALENT (ORIGINAL AND OMICRON BA.4/ [Concomitant]
     Indication: Immunisation
  6. HAIR, SKIN + NAILS [BIOTIN] [Concomitant]
  7. WOMEN^S MULTIVITAMIN + COLLAGEN [Concomitant]

REACTIONS (6)
  - Injection site dryness [Recovering/Resolving]
  - Injection site erythema [Recovering/Resolving]
  - Pruritus [Recovering/Resolving]
  - Sleep disorder [Recovering/Resolving]
  - Product preparation error [Recovering/Resolving]
  - Product use in unapproved indication [Unknown]

NARRATIVE: CASE EVENT DATE: 20210701
